FAERS Safety Report 15070288 (Version 1)
Quarter: 2018Q2

REPORT INFORMATION
  Report Type: Report from Study
  Country: GB (occurrence: GB)
  Receive Date: 20180626
  Receipt Date: 20180626
  Transmission Date: 20180711
  Serious: Yes (Hospitalization)
  Sender: FDA-Public Use
  Company Number: GB-VERTEX PHARMACEUTICALS-2018-004347

PATIENT
  Age: 24 Year
  Sex: Female
  Weight: 43 kg

DRUGS (1)
  1. ORKAMBI [Suspect]
     Active Substance: IVACAFTOR\LUMACAFTOR
     Indication: CYSTIC FIBROSIS
     Dosage: 1 DOSAGE FORM, BID
     Route: 048
     Dates: start: 20180411, end: 20180619

REACTIONS (6)
  - Malaise [Not Recovered/Not Resolved]
  - Lower respiratory tract infection [Recovering/Resolving]
  - Lethargy [Not Recovered/Not Resolved]
  - Fatigue [Not Recovered/Not Resolved]
  - Arthralgia [Not Recovered/Not Resolved]
  - Sputum discoloured [Recovering/Resolving]

NARRATIVE: CASE EVENT DATE: 2018
